FAERS Safety Report 7777406-6 (Version None)
Quarter: 2011Q3

REPORT INFORMATION
  Report Type: 
  Country: None (occurrence: None)
  Receive Date: 20110926
  Receipt Date: 20110915
  Transmission Date: 20111222
  Serious: Yes (Hospitalization)
  Sender: FDA-Public Use
  Company Number: DE-NOVOPROD-330942

PATIENT

DRUGS (1)
  1. VICTOZA [Suspect]
     Indication: TYPE 2 DIABETES MELLITUS
     Dosage: DAILY DOSE: 1.8 MG MILLGRAM(S) EVERY DAYS
     Route: 058
     Dates: start: 20101101, end: 20110101

REACTIONS (2)
  - PANCREATITIS [None]
  - CHOLESTASIS [None]
